FAERS Safety Report 5194214-3 (Version None)
Quarter: 2006Q4

REPORT INFORMATION
  Report Type: 
  Country: None (occurrence: None)
  Receive Date: 20061228
  Receipt Date: 20061217
  Transmission Date: 20070319
  Serious: Yes (Other)
  Sender: FDA-Public Use
  Company Number: US-PFIZER INC-2006154454

PATIENT
  Sex: Male

DRUGS (1)
  1. VIAGRA [Suspect]
     Indication: ERECTILE DYSFUNCTION

REACTIONS (5)
  - ACQUIRED IMMUNODEFICIENCY SYNDROME [None]
  - ERECTION INCREASED [None]
  - INJURY [None]
  - SEXUAL ABUSE [None]
  - SEXUALLY TRANSMITTED DISEASE [None]
